FAERS Safety Report 25314462 (Version 1)
Quarter: 2025Q2

REPORT INFORMATION
  Report Type: Spontaneous
  Country: US (occurrence: US)
  Receive Date: 20250514
  Receipt Date: 20250514
  Transmission Date: 20250717
  Serious: No
  Sender: ABBVIE
  Company Number: US-ABBVIE-6274065

PATIENT
  Age: 71 Year
  Sex: Male
  Weight: 90.718 kg

DRUGS (10)
  1. CARIPRAZINE [Suspect]
     Active Substance: CARIPRAZINE
     Indication: Bipolar I disorder
     Route: 048
     Dates: start: 20221006, end: 20221117
  2. BUPROPION [Concomitant]
     Active Substance: BUPROPION
     Indication: Bipolar I disorder
     Dates: start: 20250201
  3. AMLODIPINE [Concomitant]
     Active Substance: AMLODIPINE BESYLATE
     Indication: Hypertension
     Route: 048
     Dates: start: 2010
  4. PERINDOPRIL [Concomitant]
     Active Substance: PERINDOPRIL
     Indication: Hypertension
     Route: 048
     Dates: start: 2010
  5. MELATONIN [Concomitant]
     Active Substance: MELATONIN
     Indication: Sleep disorder
     Route: 048
     Dates: start: 20250404
  6. DIVALPROEX SODIUM [Concomitant]
     Active Substance: DIVALPROEX SODIUM
     Indication: Product used for unknown indication
     Dates: start: 20250417
  7. MEMANTINE [Concomitant]
     Active Substance: MEMANTINE
     Indication: Bipolar I disorder
     Route: 048
     Dates: start: 2011
  8. ZOPICLONE [Concomitant]
     Active Substance: ZOPICLONE
     Indication: Bipolar I disorder
     Route: 048
     Dates: start: 20240729
  9. OLANZAPINE [Concomitant]
     Active Substance: OLANZAPINE
     Indication: Bipolar I disorder
     Route: 048
     Dates: start: 20250506
  10. LAMOTRIGINE [Concomitant]
     Active Substance: LAMOTRIGINE
     Indication: Bipolar I disorder
     Route: 048
     Dates: start: 200906, end: 20250307

REACTIONS (1)
  - Sleep disorder [Not Recovered/Not Resolved]

NARRATIVE: CASE EVENT DATE: 20250425
